FAERS Safety Report 8719082 (Version 2)
Quarter: 2013Q2

REPORT INFORMATION
  Report Type: Spontaneous
  Country: US (occurrence: US)
  Receive Date: 20120813
  Receipt Date: 20130524
  Transmission Date: 20140414
  Serious: No
  Sender: FDA-Public Use
  Company Number: US-009507513-1208USA003547

PATIENT
  Age: 68 Year
  Sex: Male

DRUGS (13)
  1. SINGULAIR [Suspect]
     Indication: ASTHMA
     Dosage: 10 MG, QD
     Route: 048
     Dates: start: 201204
  2. LISINOPRIL [Concomitant]
  3. CITALOPRA [Concomitant]
  4. ALPHAGAN P [Concomitant]
  5. NIASPAN [Concomitant]
  6. AVODART [Concomitant]
  7. LIPITOR [Concomitant]
  8. RHINOCORT (BUDESONIDE) [Concomitant]
  9. TRAVATAN Z [Concomitant]
  10. LEVOTHYROXINE SODIUM [Concomitant]
  11. VENTOLIN (ALBUTEROL) [Concomitant]
  12. PULMICORT [Concomitant]
  13. SPIRIVA [Concomitant]
     Indication: ASTHMA

REACTIONS (1)
  - Drug effect decreased [Unknown]
